FAERS Safety Report 4980564-X (Version None)
Quarter: 2006Q2

REPORT INFORMATION
  Report Type: 
  Country: None (occurrence: None)
  Receive Date: 20060424
  Receipt Date: 20050224
  Transmission Date: 20061013
  Serious: Yes (Hospitalization, Disabling)
  Sender: FDA-Public Use
  Company Number: US-MERCK-0503USA00638

PATIENT
  Age: 53 Year
  Sex: Female
  Weight: 155 kg

DRUGS (1)
  1. VIOXX [Suspect]
     Route: 048

REACTIONS (5)
  - ADVERSE EVENT [None]
  - ANXIETY [None]
  - CARDIAC DISORDER [None]
  - CARDIOVASCULAR DISORDER [None]
  - CEREBROVASCULAR ACCIDENT [None]
